FAERS Safety Report 6616936-7 (Version None)
Quarter: 2010Q1

REPORT INFORMATION
  Report Type: 
  Country: None (occurrence: None)
  Receive Date: 20100301
  Receipt Date: 20100215
  Transmission Date: 20100710
  Serious: Yes (Hospitalization)
  Sender: FDA-Public Use
  Company Number: 1000011562

PATIENT
  Age: 45 Year
  Sex: Male

DRUGS (8)
  1. ESCITALOPRAM [Suspect]
     Dosage: 20 MG (20 MG, 1 IN 1 D)
     Dates: start: 20071210
  2. ESCITALOPRAM [Suspect]
     Dosage: 10 MG (10 MG, 1 IN 1 D)
  3. ABILIFY [Suspect]
     Dosage: 15 MG (15 MG, 1 IN 1 D)
     Dates: start: 20071216, end: 20071228
  4. ABILIFY [Suspect]
     Dosage: 15 MG (15 MG, 1 IN 1 D); 10 MG (10 MG, 1 IN 1 D)
     Dates: start: 20080108
  5. EDRONAX [Suspect]
     Dosage: 2 MG (2 MG, 1 IN 1 D)
     Dates: start: 20080128, end: 20080211
  6. EDRONAX [Suspect]
     Dosage: 4 MG (4 MG, 1 IN 1 D), 2 MG (2 MG, 1 IN 1 D)
     Dates: start: 20080125, end: 20080128
  7. EDRONAX [Suspect]
     Dosage: 4 MG (4 MG, 1 IN 1 D), 2 MG (2 MG, 1 IN 1 D)
     Dates: start: 20080212, end: 20080224
  8. ZYPREXA [Concomitant]

REACTIONS (4)
  - DRUG INTERACTION [None]
  - DYSKINESIA [None]
  - EJACULATION DISORDER [None]
  - LIBIDO DECREASED [None]
